FAERS Safety Report 9335950 (Version 2)
Quarter: 2013Q3

REPORT INFORMATION
  Report Type: Spontaneous
  Country: US (occurrence: US)
  Receive Date: 20130606
  Receipt Date: 20130709
  Transmission Date: 20140515
  Serious: Yes (Other)
  Sender: FDA-Public Use
  Company Number: US-AMGEN-USASP2013036309

PATIENT
  Age: 71 Year
  Sex: Female
  Weight: 53.52 kg

DRUGS (17)
  1. PROLIA [Suspect]
     Indication: PRODUCT USED FOR UNKNOWN INDICATION
     Dosage: 60 MG/ML, Q6MO
     Route: 058
     Dates: start: 201212
  2. ASPIRIN [Concomitant]
     Dosage: 81 MG, CHEWABLE
     Route: 048
  3. CYANOCOBALAMIN [Concomitant]
     Dosage: 1000 MG/ML, UNK
  4. FAMOTIDINE [Concomitant]
     Dosage: 40 MG, UNK
     Route: 048
  5. LASIX                              /00032601/ [Concomitant]
     Dosage: 20 MG, UNK
     Route: 048
  6. LOCOID LIPOCREAM [Concomitant]
     Dosage: 0.1 %, UNK
     Route: 061
  7. LOVASTATIN [Concomitant]
     Dosage: 10 MG, UNK
     Route: 048
  8. METOPROLOL SUCCINATE [Concomitant]
     Dosage: EXTENDED RELEASE 50 MG, UNK
     Route: 048
  9. NASOCORT [Concomitant]
     Dosage: 55 MUG, UNK
     Route: 045
     Dates: end: 20130522
  10. NIFEDICAL XL [Concomitant]
     Dosage: EXTENDED RELEASE 60 MG, UNK
     Route: 048
  11. PEPCID                             /00706001/ [Concomitant]
     Dosage: 20 MG, UNK
     Route: 048
  12. POTASSIUM [Concomitant]
     Dosage: 10 MEQ, UNK
  13. SINGULAIR [Concomitant]
     Dosage: 10 MG, UNK
     Route: 048
  14. SPIRIVA HANDIHALER [Concomitant]
     Dosage: 18 MUG, UNK
  15. VITAMIN D                          /00107901/ [Concomitant]
     Dosage: 50000 UNIT, UNK
     Route: 048
  16. ADVAIR [Concomitant]
     Dosage: INHALATION DISK WITH DEVICE 250-50 MCG/DOSE
  17. COMBIVENT [Concomitant]

REACTIONS (19)
  - Urinary tract infection [Unknown]
  - Supraventricular tachycardia [Unknown]
  - Syncope [Unknown]
  - Walking aid user [Unknown]
  - Feeling abnormal [Unknown]
  - Neuropathy peripheral [Unknown]
  - Gait disturbance [Unknown]
  - Osteoarthritis [Unknown]
  - Chronic obstructive pulmonary disease [Unknown]
  - Burning sensation [Unknown]
  - Hypoaesthesia [Unknown]
  - Paraesthesia [Unknown]
  - Mobility decreased [Unknown]
  - Joint crepitation [Unknown]
  - Malaise [Unknown]
  - Dyspnoea [Unknown]
  - Fatigue [Unknown]
  - Myalgia [Not Recovered/Not Resolved]
  - Pain in extremity [Not Recovered/Not Resolved]
